FAERS Safety Report 23032478 (Version 4)
Quarter: 2023Q4

REPORT INFORMATION
  Report Type: Spontaneous
  Country: US (occurrence: US)
  Receive Date: 20231005
  Receipt Date: 20231228
  Transmission Date: 20240110
  Serious: Yes (Other)
  Sender: FDA-Public Use
  Company Number: US-SA-SAC20230929000306

PATIENT
  Age: 80 Year
  Sex: Male
  Weight: 84.8 kg

DRUGS (20)
  1. DUPIXENT [Suspect]
     Active Substance: DUPILUMAB
     Indication: Chronic obstructive pulmonary disease
     Dosage: 300 MG, QOW
     Route: 058
     Dates: start: 20230322
  2. PAXLOVID [Suspect]
     Active Substance: NIRMATRELVIR\RITONAVIR
     Dosage: UNK
     Dates: start: 202308
  3. UROXATRAL [Concomitant]
     Active Substance: ALFUZOSIN HYDROCHLORIDE
  4. CIALIS [Concomitant]
     Active Substance: TADALAFIL
  5. SPIRIVA RESPIMAT [Concomitant]
     Active Substance: TIOTROPIUM BROMIDE
  6. PRILOSEC [Concomitant]
     Active Substance: OMEPRAZOLE MAGNESIUM
  7. PATADAY ONCE DAILY RELIEF [Concomitant]
     Active Substance: OLOPATADINE HYDROCHLORIDE
  8. SINGULAIR [Concomitant]
     Active Substance: MONTELUKAST SODIUM
  9. METHOTREXATE [Concomitant]
     Active Substance: METHOTREXATE
  10. MINERALS\VITAMINS [Concomitant]
     Active Substance: MINERALS\VITAMINS
  11. HYDRALAZINE HCL [Concomitant]
     Active Substance: HYDRALAZINE HYDROCHLORIDE
  12. FLONASE ALLERGY RELIEF [Concomitant]
     Active Substance: FLUTICASONE PROPIONATE
  13. CLOBETASOL PROPIONATE [Concomitant]
     Active Substance: CLOBETASOL PROPIONATE
  14. COREG [Concomitant]
     Active Substance: CARVEDILOL
  15. CALCIUM [Concomitant]
     Active Substance: CALCIUM
  16. ASPIRIN [Concomitant]
     Active Substance: ASPIRIN
  17. NORVASC [Concomitant]
     Active Substance: AMLODIPINE BESYLATE
  18. PROAIR DIGIHALER [Concomitant]
     Active Substance: ALBUTEROL SULFATE
  19. ADVAIR HFA [Concomitant]
     Active Substance: FLUTICASONE PROPIONATE\SALMETEROL XINAFOATE
  20. B12 ACTIVE [Concomitant]

REACTIONS (8)
  - Pemphigoid [Unknown]
  - Condition aggravated [Unknown]
  - Blister [Unknown]
  - Skin ulcer [Unknown]
  - Pustule [Unknown]
  - Impaired healing [Unknown]
  - Product use in unapproved indication [Unknown]
  - Product storage error [Unknown]

NARRATIVE: CASE EVENT DATE: 20230101
